FAERS Safety Report 8287151-9 (Version None)
Quarter: 2012Q2

REPORT INFORMATION
  Report Type: 
  Country: None (occurrence: None)
  Receive Date: 20120416
  Receipt Date: 20120402
  Transmission Date: 20120825
  Serious: Yes (Death, Other)
  Sender: FDA-Public Use
  Company Number: US-PFIZER INC-2012071877

PATIENT
  Sex: Female
  Weight: 111.57 kg

DRUGS (16)
  1. ETHANOL [Concomitant]
  2. HYDROCODONE [Concomitant]
  3. AMITRIPTYLINE [Concomitant]
  4. PHENCYCLIDINE [Concomitant]
  5. PROPOXYPHENE HYDROCHLORIDE [Concomitant]
  6. CANNABIS [Concomitant]
  7. FLUOXETINE [Concomitant]
  8. OXYCODONE HYDROCHLORIDE [Concomitant]
  9. COCAINE [Concomitant]
  10. MORPHINE SULFATE [Suspect]
     Dosage: UNK
  11. TRAMADOL [Concomitant]
  12. AMPHETAMINES [Concomitant]
  13. SERTRALINE [Concomitant]
  14. FENTANYL [Concomitant]
  15. METHADONE [Concomitant]
  16. ACETAMINOPHEN [Concomitant]

REACTIONS (2)
  - ACCIDENTAL OVERDOSE [None]
  - OVERDOSE [None]
